FAERS Safety Report 10073271 (Version 2)
Quarter: 2014Q2

REPORT INFORMATION
  Report Type: Spontaneous
  Country: US (occurrence: US)
  Receive Date: 20140411
  Receipt Date: 20140428
  Transmission Date: 20141212
  Serious: Yes (Other)
  Sender: FDA-Public Use
  Company Number: US-GLAXOSMITHKLINE-A1069094A

PATIENT
  Age: 78 Year
  Sex: Male

DRUGS (1)
  1. ADVAIR [Suspect]
     Indication: PRODUCT USED FOR UNKNOWN INDICATION
     Route: 065
     Dates: start: 20101018

REACTIONS (6)
  - Cardiac operation [Unknown]
  - Lung neoplasm malignant [Unknown]
  - Cerebrovascular accident [Unknown]
  - Blood pressure increased [Unknown]
  - Blood cholesterol increased [Unknown]
  - Emphysema [Unknown]
